FAERS Safety Report 8313265-0 (Version None)
Quarter: 2012Q2

REPORT INFORMATION
  Report Type: 
  Country: None (occurrence: None)
  Receive Date: 20120426
  Receipt Date: 20120416
  Transmission Date: 20120825
  Serious: Yes (Other)
  Sender: FDA-Public Use
  Company Number: FR-NOVOPROD-349868

PATIENT
  Age: 47 Year
  Sex: Female

DRUGS (3)
  1. VICTOZA [Suspect]
     Indication: PRODUCT USED FOR UNKNOWN INDICATION
     Dosage: UNK
     Route: 065
     Dates: start: 20100101
  2. JANUVIA [Concomitant]
     Dosage: UNK
     Dates: start: 20100101
  3. METFORMIN HCL [Concomitant]
     Dosage: UNK
     Dates: start: 20100101

REACTIONS (2)
  - CATARACT [None]
  - THYROID CANCER [None]
